FAERS Safety Report 10479264 (Version 1)
Quarter: 2014Q3

REPORT INFORMATION
  Report Type: Spontaneous
  Country: US (occurrence: US)
  Receive Date: 20140926
  Receipt Date: 20140926
  Transmission Date: 20150326
  Serious: No
  Sender: FDA-Public Use
  Company Number: US-ELI_LILLY_AND_COMPANY-US201409003213

PATIENT
  Age: 73 Year
  Sex: Female

DRUGS (3)
  1. HUMALOG [Suspect]
     Active Substance: INSULIN LISPRO
     Dosage: 30 U, QD
     Route: 065
     Dates: start: 1999
  2. HUMALOG [Suspect]
     Active Substance: INSULIN LISPRO
     Indication: TYPE 2 DIABETES MELLITUS
     Dosage: 23 U, EACH MORNING
     Route: 065
     Dates: start: 1999
  3. HUMALOG [Suspect]
     Active Substance: INSULIN LISPRO
     Dosage: 40 U, EACH EVENING
     Route: 065
     Dates: start: 1999

REACTIONS (2)
  - Blood glucose increased [Unknown]
  - Drug dose omission [Unknown]

NARRATIVE: CASE EVENT DATE: 20140908
